FAERS Safety Report 10353127 (Version 1)
Quarter: 2014Q3

REPORT INFORMATION
  Report Type: Report from Study
  Country: US (occurrence: US)
  Receive Date: 20140730
  Receipt Date: 20140730
  Transmission Date: 20150326
  Serious: Yes (Hospitalization, Other)
  Sender: FDA-Public Use
  Company Number: US-BAYER-2014-080592

PATIENT
  Age: 55 Year
  Sex: Female

DRUGS (2)
  1. NEXAVAR [Suspect]
     Active Substance: SORAFENIB
     Indication: HEPATIC CANCER
     Dosage: DAILY DOSE 200 MG
     Route: 048
     Dates: start: 2014
  2. NEXAVAR [Suspect]
     Active Substance: SORAFENIB
     Indication: HEPATIC CANCER
     Dosage: 400MG DAILY DOSE
     Route: 048
     Dates: start: 201405, end: 20140521

REACTIONS (7)
  - Depression [None]
  - Burning sensation [None]
  - Rash erythematous [None]
  - Decreased appetite [None]
  - Swelling face [None]
  - Facial pain [None]
  - Abdominal pain upper [None]

NARRATIVE: CASE EVENT DATE: 201405
